FAERS Safety Report 10636280 (Version 1)
Quarter: 2014Q4

REPORT INFORMATION
  Report Type: Spontaneous
  Country: US (occurrence: None)
  Receive Date: 20141204
  Receipt Date: 20141204
  Transmission Date: 20150529
  Serious: No
  Sender: FDA-Public Use
  Company Number: None

PATIENT
  Sex: Female

DRUGS (1)
  1. DOXEPIN HCL [Suspect]
     Active Substance: DOXEPIN HYDROCHLORIDE

REACTIONS (9)
  - Accidental overdose [None]
  - Fall [None]
  - Dysarthria [None]
  - Poisoning [None]
  - Drug dispensing error [None]
  - Vomiting [None]
  - Diarrhoea [None]
  - Vertigo [None]
  - Somnolence [None]

NARRATIVE: CASE EVENT DATE: 2014
